FAERS Safety Report 8041223-2 (Version None)
Quarter: 2012Q1

REPORT INFORMATION
  Report Type: 
  Country: None (occurrence: None)
  Receive Date: 20120112
  Receipt Date: 20120102
  Transmission Date: 20120608
  Serious: Yes (Other)
  Sender: FDA-Public Use
  Company Number: US-PFIZER INC-2012000648

PATIENT
  Sex: Female
  Weight: 43.537 kg

DRUGS (11)
  1. CHANTIX [Suspect]
     Indication: SMOKING CESSATION THERAPY
     Dosage: 0.5 MG, DAILY
     Route: 048
     Dates: start: 20111101, end: 20110101
  2. BACLOFEN [Concomitant]
     Indication: MUSCLE RELAXANT THERAPY
     Dosage: 20 MG, 3X/DAY
     Dates: start: 20000101
  3. COMBIVENT [Concomitant]
     Indication: ASTHMA
     Dosage: UNK, AS NEEDED
     Dates: start: 20000101
  4. TEMAZEPAM [Concomitant]
     Indication: SLEEP DISORDER
     Dosage: 30 MG, DAILY
     Dates: start: 20000101
  5. CHANTIX [Interacting]
     Dosage: 1 MG, 2X/DAY
     Route: 048
     Dates: start: 20110101, end: 20110101
  6. ADVAIR DISKUS 100/50 [Concomitant]
     Indication: ASTHMA
     Dosage: UNK, 2X/DAY
     Dates: start: 20000101
  7. ATROVENT [Concomitant]
     Indication: ASTHMA
     Dosage: UNK, AS NEEDED
     Dates: start: 20000101
  8. MOMETASONE [Concomitant]
     Indication: ASTHMA
     Dosage: UNK, 2X/DAY
     Dates: start: 20000101
  9. DOCUSATE [Concomitant]
     Indication: ABNORMAL FAECES
     Dosage: UNK, 2X/DAY
     Dates: start: 20000101
  10. NORCO [Concomitant]
     Indication: BONE PAIN
     Dosage: 10/325MG, 1 TABLET MORNING, 1 TABLET AFTERNOON, 2 TABLETS AT NIGHT
     Route: 048
     Dates: start: 20000101
  11. GABAPENTIN [Concomitant]
     Indication: SPINAL DISORDER
     Dosage: 800 MG, 3X/DAY
     Route: 048
     Dates: start: 20000101

REACTIONS (3)
  - DRUG INTERACTION [None]
  - AGITATION [None]
  - MEMORY IMPAIRMENT [None]
